FAERS Safety Report 12439299 (Version 2)
Quarter: 2016Q3

REPORT INFORMATION
  Report Type: Report from Study
  Country: US (occurrence: US)
  Receive Date: 20160606
  Receipt Date: 20160701
  Transmission Date: 20161109
  Serious: Yes (Other)
  Sender: FDA-Public Use
  Company Number: US-BAYER-2016-076084

PATIENT
  Age: 62 Year
  Sex: Female
  Weight: 54.42 kg

DRUGS (4)
  1. ADEMPAS [Suspect]
     Active Substance: RIOCIGUAT
     Indication: PULMONARY HYPERTENSION
     Dosage: 2.5 MG, TID
     Route: 048
  2. ADEMPAS [Suspect]
     Active Substance: RIOCIGUAT
     Indication: PULMONARY HYPERTENSION
     Dosage: 2 MG, TID
     Route: 048
  3. ADEMPAS [Suspect]
     Active Substance: RIOCIGUAT
     Indication: PULMONARY HYPERTENSION
     Dosage: UNK
     Route: 048
     Dates: start: 20160204
  4. ADEMPAS [Suspect]
     Active Substance: RIOCIGUAT
     Indication: PULMONARY HYPERTENSION
     Dosage: 2.5 MG, TID
     Route: 048

REACTIONS (10)
  - Gastric ulcer helicobacter [None]
  - Loss of consciousness [Unknown]
  - Skin injury [Unknown]
  - Rib fracture [Unknown]
  - Laceration [Unknown]
  - Wound complication [Unknown]
  - Peripheral swelling [Recovered/Resolved]
  - Lip injury [Unknown]
  - Gastric stenosis [None]
  - Peripheral swelling [Unknown]

NARRATIVE: CASE EVENT DATE: 20160204
